FAERS Safety Report 21985490 (Version 2)
Quarter: 2023Q1

REPORT INFORMATION
  Report Type: Spontaneous
  Country: US (occurrence: US)
  Receive Date: 20230213
  Receipt Date: 20230307
  Transmission Date: 20230418
  Serious: No
  Sender: FDA-Public Use
  Company Number: US-PFIZER INC-PV202300025212

PATIENT
  Age: 58 Year
  Sex: Male
  Weight: 121.08 kg

DRUGS (1)
  1. CIBINQO [Suspect]
     Active Substance: ABROCITINIB
     Indication: Dermatitis
     Dosage: UNK

REACTIONS (3)
  - Blood pressure abnormal [Unknown]
  - Gastric disorder [Unknown]
  - Off label use [Unknown]
